FAERS Safety Report 19798403 (Version 1)
Quarter: 2021Q3

REPORT INFORMATION
  Report Type: Spontaneous
  Country: US (occurrence: US)
  Receive Date: 20210906
  Receipt Date: 20210906
  Transmission Date: 20211014
  Serious: Yes (Other)
  Sender: FDA-Public Use
  Company Number: US-ASTRAZENECA-2021A706895

PATIENT
  Age: 930 Month

DRUGS (1)
  1. FARXIGA [Suspect]
     Active Substance: DAPAGLIFLOZIN PROPANEDIOL
     Route: 048

REACTIONS (5)
  - Loss of consciousness [Unknown]
  - Amnesia [Unknown]
  - Concussion [Unknown]
  - Road traffic accident [Unknown]
  - Memory impairment [Unknown]

NARRATIVE: CASE EVENT DATE: 201711
